FAERS Safety Report 5738427-8 (Version None)
Quarter: 2008Q2

REPORT INFORMATION
  Report Type: 
  Country: None (occurrence: None)
  Receive Date: 20080513
  Receipt Date: 20080430
  Transmission Date: 20081010
  Serious: Yes (Disabling)
  Sender: FDA-Public Use
  Company Number: POMP-1000135

PATIENT
  Age: 2 Year
  Sex: Male
  Weight: 14 kg

DRUGS (6)
  1. MYOZYME [Suspect]
     Indication: GLYCOGEN STORAGE DISEASE TYPE II
     Dosage: INTRAVENOUS
     Route: 042
     Dates: start: 20061114
  2. ASPIRIN [Concomitant]
  3. COREG [Concomitant]
  4. LASIX [Concomitant]
  5. ENALAPRIL MALEATE AND HYDROCHLOROTHIAZIDE [Concomitant]
  6. RANITIDINE HCL [Concomitant]

REACTIONS (5)
  - DISEASE PROGRESSION [None]
  - HYPOKINESIA [None]
  - MUSCULAR WEAKNESS [None]
  - NYSTAGMUS [None]
  - RESPIRATORY FAILURE [None]
